FAERS Safety Report 8443131-1 (Version None)
Quarter: 2012Q2

REPORT INFORMATION
  Report Type: 
  Country: None (occurrence: None)
  Receive Date: 20120615
  Receipt Date: 20120611
  Transmission Date: 20120825
  Serious: Yes (Other)
  Sender: FDA-Public Use
  Company Number: US-MERCK-1107USA02331

PATIENT
  Age: 45 Year
  Sex: Female
  Weight: 80 kg

DRUGS (4)
  1. ZYRTEC [Concomitant]
     Route: 065
  2. CITRACAL [Concomitant]
     Route: 065
  3. FOSAMAX [Suspect]
     Indication: PROPHYLAXIS
     Route: 048
     Dates: start: 20040922, end: 20050101
  4. FOSAMAX [Suspect]
     Indication: OSTEOPOROSIS
     Route: 048
     Dates: start: 20040922, end: 20050101

REACTIONS (29)
  - OSTEONECROSIS OF JAW [None]
  - ANXIETY [None]
  - MUSCLE SPASMS [None]
  - PAIN IN EXTREMITY [None]
  - HEADACHE [None]
  - INSOMNIA [None]
  - PAIN [None]
  - OSTEOMYELITIS [None]
  - UPPER RESPIRATORY TRACT INFECTION [None]
  - FALL [None]
  - INFECTION [None]
  - HYPOTENSION [None]
  - URINARY TRACT INFECTION [None]
  - BLOOD CHOLESTEROL INCREASED [None]
  - ENDOMETRIOSIS [None]
  - FATIGUE [None]
  - INGROWING NAIL [None]
  - ROAD TRAFFIC ACCIDENT [None]
  - BACK PAIN [None]
  - BREAST DISORDER [None]
  - NECK PAIN [None]
  - OEDEMA [None]
  - ABNORMAL WEIGHT GAIN [None]
  - ARTHRITIS [None]
  - ARTHROPATHY [None]
  - GASTRITIS [None]
  - POST-TRAUMATIC NECK SYNDROME [None]
  - VULVOVAGINAL DRYNESS [None]
  - BURSITIS [None]
